FAERS Safety Report 26170745 (Version 1)
Quarter: 2025Q4

REPORT INFORMATION
  Report Type: Spontaneous
  Country: US (occurrence: US)
  Receive Date: 20251217
  Receipt Date: 20251217
  Transmission Date: 20260117
  Serious: No
  Sender: ALVOGEN
  Company Number: US-ALVOGEN-2025097945

PATIENT
  Age: 78 Year
  Sex: Male

DRUGS (1)
  1. FENTANYL [Suspect]
     Active Substance: FENTANYL
     Indication: Pain in extremity
     Dosage: 100 MICROGRAMS PER HOUR
     Route: 062
     Dates: start: 202502

REACTIONS (3)
  - Withdrawal syndrome [Unknown]
  - Device defective [Unknown]
  - Therapeutic response shortened [Unknown]

NARRATIVE: CASE EVENT DATE: 20250101
